FAERS Safety Report 7726308-X (Version None)
Quarter: 2011Q3

REPORT INFORMATION
  Report Type: 
  Country: None (occurrence: None)
  Receive Date: 20110902
  Receipt Date: 20110824
  Transmission Date: 20111222
  Serious: Yes (Other)
  Sender: FDA-Public Use
  Company Number: US-EISAI INC-E3810-04895-SPO-US

PATIENT
  Sex: Male

DRUGS (1)
  1. ACIPHEX [Suspect]
     Route: 048

REACTIONS (2)
  - OSTEOPOROSIS [None]
  - ABDOMINAL PAIN UPPER [None]
